FAERS Safety Report 7237250-5 (Version None)
Quarter: 2011Q1

REPORT INFORMATION
  Report Type: 
  Country: None (occurrence: None)
  Receive Date: 20110121
  Receipt Date: 20110110
  Transmission Date: 20110831
  Serious: No
  Sender: FDA-Public Use
  Company Number: US-B.I. PHARMACEUTICALS,INC./RIDGEFIELD-2011-BP-01089BP

PATIENT
  Age: 83 Year
  Sex: Female

DRUGS (7)
  1. PRADAXA [Suspect]
     Indication: CEREBROVASCULAR ACCIDENT PROPHYLAXIS
  2. PRADAXA [Suspect]
     Indication: ATRIAL FIBRILLATION
     Dosage: 300 MG
     Route: 048
     Dates: start: 20110103
  3. LISINOPRIL [Concomitant]
     Indication: BLOOD PRESSURE
  4. METOPROLOL [Concomitant]
     Indication: BLOOD PRESSURE
  5. CHOLESTEROL MEDS [Concomitant]
     Indication: BLOOD CHOLESTEROL INCREASED
  6. GLIPIZIDE [Concomitant]
     Indication: DIABETES MELLITUS
  7. ASA [Concomitant]
     Indication: PROPHYLAXIS
     Dosage: 81 MG

REACTIONS (2)
  - BREAST PAIN [None]
  - CHROMATURIA [None]
